FAERS Safety Report 6279251-X (Version None)
Quarter: 2009Q3

REPORT INFORMATION
  Report Type: 
  Country: None (occurrence: None)
  Receive Date: 20090717
  Receipt Date: 20090717
  Transmission Date: 20100115
  Serious: No
  Sender: FDA-Public Use
  Company Number: None

PATIENT
  Age: 39 Year
  Sex: Female
  Weight: 61.2356 kg

DRUGS (1)
  1. CHANTIX [Suspect]
     Indication: SMOKING CESSATION THERAPY
     Dosage: 1 MG 2 X DAILY PO
     Route: 048
     Dates: start: 20090616, end: 20090716

REACTIONS (2)
  - ABNORMAL BEHAVIOUR [None]
  - AMNESIA [None]
